FAERS Safety Report 18012548 (Version 3)
Quarter: 2020Q3

REPORT INFORMATION
  Report Type: Spontaneous
  Country: PT (occurrence: PT)
  Receive Date: 20200713
  Receipt Date: 20200818
  Transmission Date: 20201103
  Serious: Yes (Other)
  Sender: FDA-Public Use
  Company Number: NVSC2020PT193424

PATIENT
  Age: 12 Year
  Sex: Female

DRUGS (4)
  1. ESTRADIOL. [Suspect]
     Active Substance: ESTRADIOL
     Dosage: UNK
     Route: 065
  2. ESTRADIOL. [Suspect]
     Active Substance: ESTRADIOL
     Indication: CNS GERMINOMA
     Dosage: UNK
     Route: 065
  3. NORELGESTROMIN [Suspect]
     Active Substance: NORELGESTROMIN
     Indication: CNS GERMINOMA
     Dosage: UNK
     Route: 065
  4. ETHINYLESTRADIOL [Suspect]
     Active Substance: ETHINYL ESTRADIOL
     Indication: CNS GERMINOMA
     Dosage: UNK
     Route: 065

REACTIONS (3)
  - Cerebral venous sinus thrombosis [Unknown]
  - Transverse sinus thrombosis [Unknown]
  - Off label use [Unknown]
